FAERS Safety Report 4498657-2 (Version None)
Quarter: 2004Q4

REPORT INFORMATION
  Report Type: 
  Country: None (occurrence: None)
  Receive Date: 20041108
  Receipt Date: 20041026
  Transmission Date: 20050328
  Serious: Yes (Other)
  Sender: FDA-Public Use
  Company Number: 2004241531US

PATIENT
  Age: 65 Year
  Sex: Female
  Weight: 83 kg

DRUGS (14)
  1. BEXTRA [Suspect]
     Indication: ARTHRALGIA
     Dosage: 10 MG, QD, ORAL
     Route: 048
     Dates: start: 20040901, end: 20041015
  2. LASIX [Suspect]
     Indication: CARDIAC FAILURE CONGESTIVE
     Dosage: 80 MG, QD, ORAL
     Route: 048
     Dates: start: 20010101
  3. ZANTAC [Concomitant]
  4. HUMALOG [Concomitant]
  5. LANTUS [Concomitant]
  6. ELAVIL [Concomitant]
  7. FLOVENT [Concomitant]
  8. ACCUPRIL [Concomitant]
  9. CALCIUM [Concomitant]
  10. MULTIVITAMINS (PANTHENOL, RETINOL, ERGOCALCIFEROL) [Concomitant]
  11. LIPITOR [Concomitant]
  12. AMIODARONE HCL [Concomitant]
  13. PREDNISONE [Concomitant]
  14. COUMADIN [Concomitant]

REACTIONS (5)
  - DECUBITUS ULCER [None]
  - DRUG INTERACTION [None]
  - OEDEMA PERIPHERAL [None]
  - SKIN ULCER [None]
  - TOE AMPUTATION [None]
